FAERS Safety Report 10339561 (Version 2)
Quarter: 2014Q3

REPORT INFORMATION
  Report Type: Spontaneous
  Country: FR (occurrence: FR)
  Receive Date: 20140724
  Receipt Date: 20140804
  Transmission Date: 20150326
  Serious: Yes (Other)
  Sender: FDA-Public Use
  Company Number: PHHY2014FR086546

PATIENT
  Age: 68 Year
  Sex: Male

DRUGS (5)
  1. RILMENIDINE [Suspect]
     Active Substance: RILMENIDINE
     Indication: HYPERTENSION
     Dosage: 2 MG, PER DAY
  2. ITRACONAZOLE. [Suspect]
     Active Substance: ITRACONAZOLE
     Indication: BRONCHOPULMONARY ASPERGILLOSIS
     Dosage: 200 MG, PER DAY
     Dates: start: 201107
  3. IRBESARTAN. [Suspect]
     Active Substance: IRBESARTAN
     Indication: HYPERTENSION
     Dosage: 150 MG, PER DAY
  4. HYDROCHLOROTHIAZIDE. [Suspect]
     Active Substance: HYDROCHLOROTHIAZIDE
     Indication: HYPERTENSION
  5. HYDROCHLOROTHIAZIDE. [Suspect]
     Active Substance: HYDROCHLOROTHIAZIDE
     Dosage: 25 MG, UNK

REACTIONS (8)
  - Left ventricular hypertrophy [Unknown]
  - Overdose [Unknown]
  - Hypertension [Unknown]
  - Blood pressure increased [Recovered/Resolved]
  - Hypokalaemia [Recovered/Resolved]
  - Drug resistance [Unknown]
  - Oedema peripheral [Recovering/Resolving]
  - Drug level increased [Unknown]
